FAERS Safety Report 5994526-7 (Version None)
Quarter: 2008Q4

REPORT INFORMATION
  Report Type: 
  Country: None (occurrence: None)
  Receive Date: 20081212
  Receipt Date: 20081208
  Transmission Date: 20090506
  Serious: Yes (Life-Threatening, Hospitalization)
  Sender: FDA-Public Use
  Company Number: GB-MERCK-0703USA05200

PATIENT
  Age: 72 Year

DRUGS (6)
  1. HYDRODIURIL [Suspect]
     Indication: HYPERTENSION
     Route: 048
     Dates: end: 20070303
  2. PRINIVIL [Suspect]
     Indication: HYPERTENSION
     Route: 048
  3. AMLODIPINE BESYLATE [Concomitant]
     Indication: HYPERTENSION
     Route: 048
  4. ATORVASTATIN CALCIUM [Concomitant]
     Route: 065
  5. LANTUS [Concomitant]
     Indication: DIABETES MELLITUS
     Route: 058
  6. METFORMIN [Concomitant]
     Indication: DIABETES MELLITUS
     Route: 065

REACTIONS (6)
  - BLOOD CREATININE INCREASED [None]
  - BLOOD POTASSIUM INCREASED [None]
  - DIARRHOEA [None]
  - LETHARGY [None]
  - RENAL FAILURE ACUTE [None]
  - VOMITING [None]
